FAERS Safety Report 4435319-1 (Version None)
Quarter: 2004Q3

REPORT INFORMATION
  Report Type: 
  Country: None (occurrence: None)
  Receive Date: 20040827
  Receipt Date: 20040827
  Transmission Date: 20050211
  Serious: Yes (Other)
  Sender: FDA-Public Use
  Company Number: None

PATIENT
  Age: 58 Year
  Sex: Female
  Weight: 68.0396 kg

DRUGS (4)
  1. EFFEXOR XR [Suspect]
     Indication: DYSTHYMIC DISORDER
     Dosage: 37.5  BID ORAL, 25 QD ORAL
     Route: 048
     Dates: start: 20011001, end: 20020401
  2. EFFEXOR XR [Suspect]
     Indication: MENOPAUSE
     Dosage: 37.5  BID ORAL, 25 QD ORAL
     Route: 048
     Dates: start: 20011001, end: 20020401
  3. EFFEXOR XR [Suspect]
     Indication: DYSTHYMIC DISORDER
     Dosage: 37.5  BID ORAL, 25 QD ORAL
     Route: 048
     Dates: start: 20030301, end: 20031101
  4. EFFEXOR XR [Suspect]
     Indication: MENOPAUSE
     Dosage: 37.5  BID ORAL, 25 QD ORAL
     Route: 048
     Dates: start: 20030301, end: 20031101

REACTIONS (3)
  - HYPERACUSIS [None]
  - PARAESTHESIA [None]
  - SLEEP DISORDER [None]
